FAERS Safety Report 7327133-4 (Version None)
Quarter: 2011Q1

REPORT INFORMATION
  Report Type: 
  Country: None (occurrence: None)
  Receive Date: 20110302
  Receipt Date: 20110216
  Transmission Date: 20110831
  Serious: Yes (Disabling, Other)
  Sender: FDA-Public Use
  Company Number: US-CELGENEUS-163-21880-11012244

PATIENT
  Sex: Female
  Weight: 71 kg

DRUGS (4)
  1. DECADRON [Concomitant]
     Route: 065
  2. REVLIMID [Suspect]
     Dosage: 15 MILLIGRAM
     Route: 048
     Dates: start: 20100401
  3. REVLIMID [Suspect]
     Indication: MULTIPLE MYELOMA
     Dosage: 15 MILLIGRAM
     Route: 048
     Dates: start: 20100901
  4. REVLIMID [Suspect]
     Dosage: 15 MILLIGRAM
     Route: 048
     Dates: start: 20101206

REACTIONS (4)
  - REFLUX OESOPHAGITIS [None]
  - PLASMACYTOMA [None]
  - BLINDNESS [None]
  - BLINDNESS UNILATERAL [None]
